FAERS Safety Report 7485237-X (Version None)
Quarter: 2011Q2

REPORT INFORMATION
  Report Type: 
  Country: None (occurrence: None)
  Receive Date: 20110517
  Receipt Date: 20101214
  Transmission Date: 20111010
  Serious: No
  Sender: FDA-Public Use
  Company Number: US-BAYER-2010-005080

PATIENT
  Age: 81 Year
  Sex: Female
  Weight: 200 kg

DRUGS (6)
  1. BLOOD PRESSURE MEDICATION (NOS) [Concomitant]
  2. MOTRIN [Concomitant]
     Dosage: 600 MG, UNK
     Route: 048
     Dates: start: 20101213
  3. ALEVE (CAPLET) [Suspect]
     Indication: ARTHRALGIA
  4. AVAPRO [Concomitant]
  5. ALEVE (CAPLET) [Suspect]
     Indication: MUSCULOSKELETAL PAIN
     Dosage: 220 MG, BID
     Route: 048
     Dates: start: 20101213
  6. WATER [Concomitant]

REACTIONS (3)
  - CHROMATURIA [None]
  - BLOOD PRESSURE INCREASED [None]
  - DIZZINESS [None]
